FAERS Safety Report 17353914 (Version 2)
Quarter: 2020Q3

REPORT INFORMATION
  Report Type: Report from Study
  Country: JP (occurrence: JP)
  Receive Date: 20200131
  Receipt Date: 20200817
  Transmission Date: 20201102
  Serious: Yes (Other)
  Sender: FDA-Public Use
  Company Number: JP-TEVA-2020-JP-1179635

PATIENT
  Age: 80 Year
  Sex: Female
  Weight: 55 kg

DRUGS (8)
  1. LEVODOPA [Concomitant]
     Active Substance: LEVODOPA
  2. RASAGILINE MESYLATE. [Suspect]
     Active Substance: RASAGILINE MESYLATE
     Dosage: .5 MILLIGRAM DAILY;
     Route: 065
     Dates: start: 20190402, end: 20190408
  3. AMANTADINE HYDROCHLORIDE. [Concomitant]
     Active Substance: AMANTADINE HYDROCHLORIDE
  4. ENTACAPONE. [Concomitant]
     Active Substance: ENTACAPONE
  5. ESZOPICLONE. [Concomitant]
     Active Substance: ESZOPICLONE
  6. DOMPERIDONE [Concomitant]
     Active Substance: DOMPERIDONE
  7. RASAGILINE MESYLATE. [Suspect]
     Active Substance: RASAGILINE MESYLATE
     Indication: PARKINSON^S DISEASE
     Dosage: .5 MILLIGRAM DAILY;
     Route: 065
     Dates: start: 20190313, end: 20190325
  8. RASAGILINE MESYLATE. [Suspect]
     Active Substance: RASAGILINE MESYLATE
     Dosage: 1 MILLIGRAM DAILY;
     Route: 065
     Dates: start: 20190326, end: 20190401

REACTIONS (3)
  - Nausea [Recovering/Resolving]
  - Hallucination, visual [Recovering/Resolving]
  - Condition aggravated [Recovering/Resolving]

NARRATIVE: CASE EVENT DATE: 20190402
